FAERS Safety Report 5301811-0 (Version None)
Quarter: 2007Q2

REPORT INFORMATION
  Report Type: 
  Country: None (occurrence: None)
  Receive Date: 20070411
  Receipt Date: 20070329
  Transmission Date: 20071010
  Serious: Yes (Hospitalization)
  Sender: FDA-Public Use
  Company Number: 144-C5013-07031678

PATIENT
  Age: 80 Year
  Sex: Male

DRUGS (7)
  1. CC-5013 (LENALIDOMIDE) (CAPSULES [Suspect]
     Indication: MYELODYSPLASTIC SYNDROME
     Dosage: ORAL
     Route: 048
     Dates: start: 20061123, end: 20061207
  2. CC-5013 (LENALIDOMIDE) (CAPSULES [Suspect]
     Indication: MYELODYSPLASTIC SYNDROME
     Dosage: ORAL
     Route: 048
     Dates: start: 20061214, end: 20061228
  3. DI-AMBEN (METFORMIN) (850 DOSAGE FORMS) [Concomitant]
  4. AMERIDE (MODURETIC ^MSD^) [Concomitant]
  5. POLARAMINE [Concomitant]
  6. UROLOSIN (TAMSULOSIN HYDROCHLORIDE) [Concomitant]
  7. ARANESP [Concomitant]

REACTIONS (4)
  - BLOOD CULTURE POSITIVE [None]
  - GENERALISED OEDEMA [None]
  - NEUTROPENIA [None]
  - SERRATIA INFECTION [None]
